FAERS Safety Report 10925005 (Version 2)
Quarter: 2015Q2

REPORT INFORMATION
  Report Type: Spontaneous
  Country: US (occurrence: US)
  Receive Date: 20150318
  Receipt Date: 20150524
  Transmission Date: 20150821
  Serious: No
  Sender: FDA-Public Use
  Company Number: US-JNJFOC-20140511920

PATIENT
  Age: 82 Year
  Sex: Female
  Weight: 46.72 kg

DRUGS (4)
  1. KETOCONAZOLE. [Suspect]
     Active Substance: KETOCONAZOLE
     Indication: NODULE
     Route: 061
     Dates: start: 201404, end: 20140518
  2. OMEPRAZOLE. [Concomitant]
     Active Substance: OMEPRAZOLE
     Indication: BARRETT^S OESOPHAGUS
     Route: 048
  3. LEVOTHYROXINE [Concomitant]
     Active Substance: LEVOTHYROXINE
     Indication: THYROID DISORDER
     Route: 048
  4. ALENDRONATE [Concomitant]
     Active Substance: ALENDRONATE SODIUM
     Route: 048

REACTIONS (1)
  - Treatment noncompliance [Unknown]

NARRATIVE: CASE EVENT DATE: 20140518
